FAERS Safety Report 5833210-7 (Version None)
Quarter: 2008Q3

REPORT INFORMATION
  Report Type: 
  Country: None (occurrence: None)
  Receive Date: 20080805
  Receipt Date: 20080731
  Transmission Date: 20090109
  Serious: Yes (Other)
  Sender: FDA-Public Use
  Company Number: DE-BRISTOL-MYERS SQUIBB COMPANY-14285456

PATIENT
  Age: 42 Year
  Sex: Female

DRUGS (1)
  1. LITALIR CAPS 500 MG [Suspect]
     Indication: POLYCYTHAEMIA VERA

REACTIONS (1)
  - NERVOUS SYSTEM DISORDER [None]
